FAERS Safety Report 6606494-5 (Version None)
Quarter: 2010Q1

REPORT INFORMATION
  Report Type: 
  Country: None (occurrence: None)
  Receive Date: 20100226
  Receipt Date: 20100219
  Transmission Date: 20100710
  Serious: Yes (Death)
  Sender: FDA-Public Use
  Company Number: PHHY2010MX00624

PATIENT
  Age: 88 Year
  Sex: Female

DRUGS (1)
  1. CO-DIOVAN [Suspect]
     Indication: HYPERTENSION
     Dosage: 1 DF DAILY
     Route: 048
     Dates: start: 20050101, end: 20091101

REACTIONS (5)
  - CARDIO-RESPIRATORY ARREST [None]
  - HYPOTENSION [None]
  - PYELONEPHRITIS [None]
  - RENAL FAILURE [None]
  - SEPTIC SHOCK [None]
